FAERS Safety Report 11117630 (Version 2)
Quarter: 2015Q3

REPORT INFORMATION
  Report Type: Spontaneous
  Country: RU (occurrence: RU)
  Receive Date: 20150517
  Receipt Date: 20150903
  Transmission Date: 20151125
  Serious: Yes (Hospitalization)
  Sender: FDA-Public Use
  Company Number: RU-MYLANLABS-2015M1015903

PATIENT

DRUGS (2)
  1. FUROSEMIDE. [Suspect]
     Active Substance: FUROSEMIDE
     Indication: FLUID RETENTION
     Dosage: 40MG UP TO 2-3 TIMES PER WEEK
     Route: 065
  2. NITROXOLINE [Concomitant]
     Active Substance: NITROXOLINE
     Route: 065

REACTIONS (7)
  - Tubulointerstitial nephritis [Recovered/Resolved]
  - Hyponatraemia [Recovered/Resolved]
  - Intentional product misuse [Recovered/Resolved]
  - Gastroenteritis [Recovered/Resolved]
  - Hypokalaemia [Recovered/Resolved]
  - Acute kidney injury [Recovered/Resolved]
  - Dehydration [Recovered/Resolved]

NARRATIVE: CASE EVENT DATE: 201311
